FAERS Safety Report 19922862 (Version 1)
Quarter: 2021Q4

REPORT INFORMATION
  Report Type: Spontaneous
  Country: US (occurrence: US)
  Receive Date: 20211005
  Receipt Date: 20211005
  Transmission Date: 20220303
  Serious: No
  Sender: FDA-Public Use
  Company Number: None

PATIENT
  Age: 50 Year
  Sex: Female
  Weight: 90 kg

DRUGS (6)
  1. MELOXICAM [Suspect]
     Active Substance: MELOXICAM
     Indication: Tendonitis
     Dosage: ?          QUANTITY:1 TABLET(S);
     Route: 048
     Dates: start: 20210927, end: 20210927
  2. TRI-ESTRELLA (ORAL CONTRACEPTIVE) [Concomitant]
  3. TRAZODONE [Concomitant]
     Active Substance: TRAZODONE HYDROCHLORIDE
  4. NEXIUM [Concomitant]
     Active Substance: ESOMEPRAZOLE MAGNESIUM
  5. VITAMIN D [Concomitant]
     Active Substance: VITAMIN D NOS
  6. CALCIUM [Concomitant]
     Active Substance: CALCIUM

REACTIONS (6)
  - Skin discolouration [None]
  - Rash erythematous [None]
  - Rash [None]
  - Rash macular [None]
  - Rash [None]
  - Rash [None]

NARRATIVE: CASE EVENT DATE: 20210927
